FAERS Safety Report 9653235 (Version 1)
Quarter: 2013Q4

REPORT INFORMATION
  Report Type: Spontaneous
  Country: US (occurrence: None)
  Receive Date: 20131028
  Receipt Date: 20131028
  Transmission Date: 20140711
  Serious: Yes (Hospitalization)
  Sender: FDA-Public Use
  Company Number: 2013US002685

PATIENT
  Age: 77 Year
  Sex: Male
  Weight: 82 kg

DRUGS (4)
  1. ICLUSIG [Suspect]
     Indication: CHRONIC MYELOID LEUKAEMIA
     Route: 048
     Dates: start: 20130915
  2. CEPHALOSPORIN C (CEPHALOSPORIN C) [Concomitant]
  3. FINASTERIDE (FINASTERIDE) [Concomitant]
  4. LLOPURINOL (ALLOPURINOL) [Concomitant]

REACTIONS (1)
  - White blood cell count increased [None]
